FAERS Safety Report 12586662 (Version 2)
Quarter: 2016Q3

REPORT INFORMATION
  Report Type: Spontaneous
  Country: US (occurrence: US)
  Receive Date: 20160725
  Receipt Date: 20160823
  Transmission Date: 20161109
  Serious: No
  Sender: FDA-Public Use
  Company Number: US-PFIZER INC-2016337979

PATIENT
  Age: 30 Year
  Sex: Female
  Weight: 63.5 kg

DRUGS (1)
  1. ADVIL [Suspect]
     Active Substance: IBUPROFEN
     Indication: DYSMENORRHOEA
     Dosage: 400 MG, DAILY (400MG, CAPSULES, BY MOUTH, TWO A DAY)
     Route: 048
     Dates: start: 2016

REACTIONS (5)
  - Product taste abnormal [Unknown]
  - Dysgeusia [Unknown]
  - Poor quality drug administered [Unknown]
  - Product physical issue [Unknown]
  - Hypoaesthesia oral [Unknown]

NARRATIVE: CASE EVENT DATE: 2016
